FAERS Safety Report 25498244 (Version 1)
Quarter: 2025Q3

REPORT INFORMATION
  Report Type: Spontaneous
  Country: EU (occurrence: EU)
  Receive Date: 20250701
  Receipt Date: 20250701
  Transmission Date: 20251021
  Serious: Yes (Other)
  Sender: GILEAD
  Company Number: EU-GILEAD-2025-0718414

PATIENT
  Age: 45 Year
  Sex: Female

DRUGS (6)
  1. TRODELVY [Suspect]
     Active Substance: SACITUZUMAB GOVITECAN-HZIY
     Indication: Triple negative breast cancer
     Route: 065
     Dates: start: 20220322
  2. TRODELVY [Suspect]
     Active Substance: SACITUZUMAB GOVITECAN-HZIY
     Route: 065
     Dates: start: 20220330
  3. XGEVA [Concomitant]
     Active Substance: DENOSUMAB
  4. GRANULOCYTE COLONY-STIMULATING FACTOR NOS [Concomitant]
     Active Substance: GRANULOCYTE COLONY-STIMULATING FACTOR NOS
  5. FILGRASTIM [Concomitant]
     Active Substance: FILGRASTIM
  6. FILGRASTIM [Concomitant]
     Active Substance: FILGRASTIM

REACTIONS (2)
  - Disease progression [Unknown]
  - Neutropenia [Unknown]
